FAERS Safety Report 18641736 (Version 1)
Quarter: 2020Q4

REPORT INFORMATION
  Report Type: Spontaneous
  Country: GB (occurrence: GB)
  Receive Date: 20201221
  Receipt Date: 20201221
  Transmission Date: 20210114
  Serious: Yes (Life-Threatening, Disabling, Other)
  Sender: FDA-Public Use
  Company Number: NVSC2020GB336205

PATIENT
  Age: 24 Year
  Sex: Female
  Weight: 76.2 kg

DRUGS (1)
  1. MONTELUKAST [Suspect]
     Active Substance: MONTELUKAST SODIUM
     Indication: ASTHMA
     Dosage: 10 MG
     Route: 048
     Dates: start: 20201114, end: 20201206

REACTIONS (4)
  - Anxiety [Unknown]
  - Sleep terror [Unknown]
  - Nightmare [Unknown]
  - Depression [Unknown]

NARRATIVE: CASE EVENT DATE: 20201121
